FAERS Safety Report 16775339 (Version 1)
Quarter: 2019Q3

REPORT INFORMATION
  Report Type: Spontaneous
  Country: US (occurrence: US)
  Receive Date: 20190716
  Receipt Date: 20190716
  Transmission Date: 20191005
  Serious: Yes (Hospitalization)
  Sender: FDA-Public Use
  Company Number: None

PATIENT
  Age: 48 Year
  Sex: Female

DRUGS (18)
  1. FOLIC ACID. [Concomitant]
     Active Substance: FOLIC ACID
  2. IBU [Concomitant]
     Active Substance: IBUPROFEN
  3. METFORMIN [Concomitant]
     Active Substance: METFORMIN HYDROCHLORIDE
  4. BIOTIN [Concomitant]
     Active Substance: BIOTIN
  5. IBUPROFEN. [Concomitant]
     Active Substance: IBUPROFEN
  6. SYNTHROID [Concomitant]
     Active Substance: LEVOTHYROXINE SODIUM
  7. CRESTOR [Concomitant]
     Active Substance: ROSUVASTATIN CALCIUM
  8. FISH OIL [Concomitant]
     Active Substance: FISH OIL
  9. HYDROXYCHLOR [Concomitant]
     Active Substance: HYDROXYCHLOROQUINE
  10. LEVOTHYROXIN [Concomitant]
     Active Substance: LEVOTHYROXINE
  11. ROSUVASTATIN. [Concomitant]
     Active Substance: ROSUVASTATIN
  12. AIMOVIG [Concomitant]
     Active Substance: ERENUMAB-AOOE
  13. ELETRIPTAN. [Concomitant]
     Active Substance: ELETRIPTAN
  14. RELPAX [Concomitant]
     Active Substance: ELETRIPTAN HYDROBROMIDE
  15. XIIDRA [Concomitant]
     Active Substance: LIFITEGRAST
  16. METHOTREXATE  50MG/2ML MDV [Suspect]
     Active Substance: METHOTREXATE SODIUM
     Indication: ESSENTIAL HYPERTENSION
     Route: 058
     Dates: start: 20171213
  17. APAP/CODEINE [Concomitant]
     Active Substance: ACETAMINOPHEN\CODEINE PHOSPHATE
  18. TIZANIDINE. [Concomitant]
     Active Substance: TIZANIDINE

REACTIONS (1)
  - Surgery [None]

NARRATIVE: CASE EVENT DATE: 20190620
